FAERS Safety Report 5950727-5 (Version None)
Quarter: 2008Q4

REPORT INFORMATION
  Report Type: 
  Country: None (occurrence: None)
  Receive Date: 20081112
  Receipt Date: 20081104
  Transmission Date: 20090506
  Serious: Yes (Hospitalization)
  Sender: FDA-Public Use
  Company Number: IT-B.I. PHARMACEUTICALS,INC./RIDGEFIELD-2008-IT-00197IT

PATIENT
  Sex: Female

DRUGS (5)
  1. SPIRIVA [Suspect]
     Indication: BRONCHITIS CHRONIC
     Dosage: 1 POSOLOGIC UNIT
     Route: 055
     Dates: start: 20080911, end: 20081020
  2. MEDROL [Concomitant]
     Dosage: 8MG
  3. LASITONE [Concomitant]
  4. CARDICOR [Concomitant]
     Dosage: .75MCG
  5. TRIATEC [Concomitant]

REACTIONS (1)
  - VENTRICULAR TACHYCARDIA [None]
